FAERS Safety Report 8986140 (Version 1)
Quarter: 2012Q4

REPORT INFORMATION
  Report Type: 
  Country: US (occurrence: None)
  Receive Date: 20121219
  Receipt Date: 20121219
  Transmission Date: 20130627
  Serious: Yes (Hospitalization)
  Sender: FDA-Public Use
  Company Number: None

PATIENT
  Age: 42 Year
  Sex: Male
  Weight: 74 kg

DRUGS (2)
  1. INDOMETHACIN [Suspect]
     Indication: PAIN
     Dosage: 50 MG TID PO
     Route: 048
     Dates: start: 20121209, end: 20121211
  2. CLINDAMYCIN [Suspect]
     Indication: CELLULITIS
     Dosage: 300 MG QID PO
     Route: 048
     Dates: start: 20121209, end: 20121211

REACTIONS (9)
  - Inappropriate schedule of drug administration [None]
  - Infection [None]
  - Abscess [None]
  - Rash pruritic [None]
  - Dyspnoea [None]
  - Chest discomfort [None]
  - Cough [None]
  - Urticaria [None]
  - Anaphylactic reaction [None]
